FAERS Safety Report 12863980 (Version 2)
Quarter: 2016Q4

REPORT INFORMATION
  Report Type: Spontaneous
  Country: US (occurrence: US)
  Receive Date: 20161019
  Receipt Date: 20161129
  Transmission Date: 20170207
  Serious: No
  Sender: FDA-Public Use
  Company Number: US-TAIHO ONCOLOGY INC-EU-2016-02124

PATIENT
  Age: 65 Year
  Sex: Male

DRUGS (5)
  1. HYDROCODONE [Concomitant]
     Active Substance: HYDROCODONE
     Dosage: NI
  2. AMOXICILLIN. [Concomitant]
     Active Substance: AMOXICILLIN
     Dosage: NI
  3. LONSURF [Suspect]
     Active Substance: TIPIRACIL HYDROCHLORIDE\TRIFLURIDINE
     Indication: RECTAL CANCER METASTATIC
     Route: 048
     Dates: start: 20160627, end: 20161004
  4. TYLENOL [Concomitant]
     Active Substance: ACETAMINOPHEN
     Dosage: NI
  5. CARVEDILOL. [Concomitant]
     Active Substance: CARVEDILOL
     Dosage: NI

REACTIONS (6)
  - Weight decreased [Unknown]
  - Dizziness [Unknown]
  - Anaemia [Unknown]
  - Disease progression [Not Recovered/Not Resolved]
  - Joint swelling [Recovered/Resolved]
  - Drug ineffective [Unknown]

NARRATIVE: CASE EVENT DATE: 2016
